FAERS Safety Report 6704410-9 (Version None)
Quarter: 2010Q2

REPORT INFORMATION
  Report Type: 
  Country: None (occurrence: None)
  Receive Date: 20100430
  Receipt Date: 20100420
  Transmission Date: 20101027
  Serious: Yes (Other)
  Sender: FDA-Public Use
  Company Number: US-BRISTOL-MYERS SQUIBB COMPANY-15071459

PATIENT
  Age: 79 Year
  Sex: Male

DRUGS (2)
  1. WARFARIN SODIUM [Suspect]
     Dosage: 1DF=5MG/D ON MONDAY AND FRIDAY 2.5MG/D ON ALL OTHER DAYS
  2. MAITAKE MUSHROOMS [Interacting]
     Indication: IMMUNE ENHANCEMENT THERAPY
     Dosage: 1 DF = 1 DROP/KG(THREE DIVIDED DOSES).

REACTIONS (2)
  - DRUG INTERACTION [None]
  - INTERNATIONAL NORMALISED RATIO INCREASED [None]
